FAERS Safety Report 21679949 (Version 3)
Quarter: 2025Q3

REPORT INFORMATION
  Report Type: Report from Study
  Country: US (occurrence: US)
  Receive Date: 20221205
  Receipt Date: 20250710
  Transmission Date: 20251020
  Serious: Yes (Hospitalization, Other)
  Sender: JAZZ
  Company Number: US-JAZZ-2022-US-036782

PATIENT
  Age: 30 Year
  Sex: Male

DRUGS (1)
  1. EPIDIOLEX [Suspect]
     Active Substance: CANNABIDIOL
     Indication: Lennox-Gastaut syndrome
     Dosage: 400 MILLIGRAM, BID. G TUBE
     Dates: start: 20220629

REACTIONS (2)
  - Hypothermia [Unknown]
  - Renal disorder [Unknown]

NARRATIVE: CASE EVENT DATE: 20221101
